FAERS Safety Report 6171283-5 (Version None)
Quarter: 2009Q2

REPORT INFORMATION
  Report Type: 
  Country: None (occurrence: None)
  Receive Date: 20090428
  Receipt Date: 20090428
  Transmission Date: 20091009
  Serious: No
  Sender: FDA-Public Use
  Company Number: None

PATIENT
  Age: 50 Year
  Sex: Female
  Weight: 78.4723 kg

DRUGS (1)
  1. SIMVASTATIN [Suspect]
     Indication: HYPERLIPIDAEMIA
     Dosage: 1 TABLET EVERY NIGHT PO
     Route: 048
     Dates: start: 20090311, end: 20090330

REACTIONS (8)
  - BACK PAIN [None]
  - DEPRESSION [None]
  - DRY SKIN [None]
  - ECZEMA [None]
  - EYELID EXFOLIATION [None]
  - EYELID INFECTION [None]
  - INSOMNIA [None]
  - MUSCULAR WEAKNESS [None]
